FAERS Safety Report 7921372-7 (Version None)
Quarter: 2011Q4

REPORT INFORMATION
  Report Type: 
  Country: None (occurrence: None)
  Receive Date: 20111117
  Receipt Date: 20111114
  Transmission Date: 20120403
  Serious: No
  Sender: FDA-Public Use
  Company Number: FR-PFIZER INC-2011275271

PATIENT
  Sex: Female
  Weight: 65 kg

DRUGS (2)
  1. IBUPROFEN [Suspect]
     Dosage: UNKNOWN
  2. ACETAMINOPHEN [Suspect]
     Indication: PAIN
     Dosage: UNKNOWN

REACTIONS (1)
  - DRUG INEFFECTIVE [None]
